FAERS Safety Report 6928052-5 (Version None)
Quarter: 2010Q3

REPORT INFORMATION
  Report Type: 
  Country: None (occurrence: None)
  Receive Date: 20100816
  Receipt Date: 20100816
  Transmission Date: 20110219
  Serious: No
  Sender: FDA-Public Use
  Company Number: None

PATIENT
  Age: 64 Year
  Sex: Female
  Weight: 58.9676 kg

DRUGS (1)
  1. AZITHROMYCIN TABLETS 250 MG -TAKE 2 THE 1ST DAY- WOCKHARDT [Suspect]
     Indication: OTOSALPINGITIS
     Dosage: 2 TABLETS -1ST DAY ONLY- 1 TIME DAILY PO
     Route: 048
     Dates: start: 20100812, end: 20100812

REACTIONS (4)
  - DIARRHOEA [None]
  - DIZZINESS [None]
  - MIDDLE INSOMNIA [None]
  - VOMITING [None]
